FAERS Safety Report 6067904-8 (Version None)
Quarter: 2009Q1

REPORT INFORMATION
  Report Type: 
  Country: None (occurrence: None)
  Receive Date: 20090203
  Receipt Date: 20090123
  Transmission Date: 20090719
  Serious: Yes (Death, Other)
  Sender: FDA-Public Use
  Company Number: ADE2009-0427

PATIENT
  Sex: Male

DRUGS (3)
  1. SIMVASTATIN [Suspect]
     Indication: POST PROCEDURAL STROKE
     Dosage: UNK - UNK - ORAL
     Route: 048
     Dates: start: 20080923, end: 20080101
  2. CITALOPRAM HYDROBROMIDE [Concomitant]
  3. MIRTAZAPINE [Concomitant]

REACTIONS (3)
  - COMPLETED SUICIDE [None]
  - CONDITION AGGRAVATED [None]
  - DEPRESSION [None]
